FAERS Safety Report 9454601 (Version 1)
Quarter: 2013Q3

REPORT INFORMATION
  Report Type: Spontaneous
  Country: FR (occurrence: FR)
  Receive Date: 20130812
  Receipt Date: 20130812
  Transmission Date: 20140515
  Serious: Yes (Other)
  Sender: FDA-Public Use
  Company Number: FR-PFIZER INC-2013227230

PATIENT
  Age: 10 Year
  Sex: Male
  Weight: 43 kg

DRUGS (11)
  1. ARACYTINE [Suspect]
     Indication: ACUTE LYMPHOCYTIC LEUKAEMIA
     Dosage: UNK
     Route: 037
     Dates: start: 20130624, end: 20130701
  2. KIDROLASE [Suspect]
     Indication: ACUTE LYMPHOCYTIC LEUKAEMIA
     Dosage: 7500 IU, CYCLIC
     Route: 042
     Dates: start: 20130624, end: 20130710
  3. VINCRISTINE [Suspect]
     Indication: ACUTE LYMPHOCYTIC LEUKAEMIA
     Dosage: 1.9 MG, CYCLIC
     Route: 042
     Dates: start: 20130620, end: 20130711
  4. CERUBIDINE [Suspect]
     Indication: ACUTE LYMPHOCYTIC LEUKAEMIA
     Dosage: 50 MG, CYCLIC
     Route: 042
     Dates: start: 20130620, end: 20130704
  5. METHOTREXATE MYLAN [Suspect]
     Indication: ACUTE LYMPHOCYTIC LEUKAEMIA
     Dosage: UNK
     Route: 037
     Dates: start: 20130614, end: 20130701
  6. PARACETAMOL [Concomitant]
     Dosage: UNK
  7. LOVENOX [Concomitant]
     Dosage: UNK
  8. NALBUPHINE MYLAN [Concomitant]
     Dosage: UNK
  9. BACTRIM [Concomitant]
     Dosage: UNK
  10. FORTUM [Concomitant]
     Dosage: UNK
  11. VANCOMYCIN [Concomitant]
     Dosage: UNK

REACTIONS (1)
  - Hepatitis [Recovering/Resolving]
